FAERS Safety Report 9143824 (Version 1)
Quarter: 2013Q1

REPORT INFORMATION
  Report Type: Spontaneous
  Country: IT (occurrence: IT)
  Receive Date: 20130306
  Receipt Date: 20130306
  Transmission Date: 20140127
  Serious: Yes (Hospitalization)
  Sender: FDA-Public Use
  Company Number: IT-ROCHE-1197897

PATIENT
  Age: 20 Year
  Sex: Male

DRUGS (4)
  1. VALIUM [Suspect]
     Indication: DEPRESSION
     Route: 065
     Dates: start: 20090101, end: 20120923
  2. ESCITALOPRAM OXALATE [Suspect]
     Indication: DEPRESSION
     Route: 048
     Dates: start: 20090101, end: 20120923
  3. MINIAS [Suspect]
     Indication: DEPRESSION
     Route: 048
     Dates: start: 20090101, end: 20120923
  4. ALCOHOL [Concomitant]

REACTIONS (3)
  - Suicide attempt [Unknown]
  - Toxicity to various agents [Recovered/Resolved]
  - Drug abuse [Unknown]
